FAERS Safety Report 4474021-7 (Version None)
Quarter: 2004Q4

REPORT INFORMATION
  Report Type: 
  Country: None (occurrence: None)
  Receive Date: 20041008
  Receipt Date: 20040928
  Transmission Date: 20050328
  Serious: No
  Sender: FDA-Public Use
  Company Number: 04H-087-0275586-00

PATIENT
  Age: 31 Year
  Sex: Female

DRUGS (12)
  1. PENTAZOCINE LACTATE [Suspect]
     Indication: ANAESTHETIC PREMEDICATION
     Dosage: 15 MG, ONCE INTRAMUSCULAR
     Route: 030
     Dates: start: 20040620, end: 20040620
  2. ATROPINE SULFATE [Suspect]
     Indication: ANAESTHETIC PREMEDICATION
     Dosage: 0.5 MG, ONCE INTRAMUSCULAR
     Route: 030
     Dates: start: 20040620, end: 20040620
  3. HYDROXYZINE HYDROCHLORIDE [Suspect]
     Indication: ANAESTHETIC PREMEDICATION
     Dosage: 50 MG, ONCE, INTRAMUSCULAR
     Route: 030
     Dates: start: 20040620, end: 20040620
  4. RINGER-LACTATE SOLUTION ^FRESENIUS^ [Concomitant]
  5. CEFACLOR [Concomitant]
  6. TIARAMIDE HYDROCHLORIDE [Concomitant]
  7. METHYLERGOMETRINE MALEATE [Concomitant]
  8. POTACOL-R [Concomitant]
  9. MALTOSE [Concomitant]
  10. CEFACLOR [Concomitant]
  11. TIARAMIDE HYDROCHLORIDE [Concomitant]
  12. METHYLERGOMETRINE MALEATE [Concomitant]

REACTIONS (5)
  - FAT NECROSIS [None]
  - INJECTION SITE NECROSIS [None]
  - INJECTION SITE PAIN [None]
  - INJECTION SITE SWELLING [None]
  - INJECTION SITE ULCER [None]
